FAERS Safety Report 13076980 (Version 4)
Quarter: 2017Q1

REPORT INFORMATION
  Report Type: Spontaneous
  Country: US (occurrence: US)
  Receive Date: 20161230
  Receipt Date: 20170322
  Transmission Date: 20170428
  Serious: No
  Sender: FDA-Public Use
  Company Number: US-PFIZER INC-2016589984

PATIENT
  Age: 78 Year
  Sex: Female

DRUGS (14)
  1. GABAPENTIN. [Suspect]
     Active Substance: GABAPENTIN
     Indication: BURNING SENSATION
     Dosage: 300 MG, UNK
  2. HYDROCODONE BITARTRATE AND ACETAMINOPHEN [Concomitant]
     Active Substance: ACETAMINOPHEN\HYDROCODONE BITARTRATE
     Dosage: UNK
  3. IBRANCE [Suspect]
     Active Substance: PALBOCICLIB
     Dosage: UNK (21 DAY^S ON 7 DAY^S OFF)
  4. GABAPENTIN. [Suspect]
     Active Substance: GABAPENTIN
     Dosage: 600 MG, 2X/DAY
     Dates: start: 201607
  5. FENTANYL. [Concomitant]
     Active Substance: FENTANYL
     Dosage: UNK
     Dates: start: 20161219, end: 20161224
  6. LYRICA [Concomitant]
     Active Substance: PREGABALIN
     Dosage: UNK
     Dates: start: 20161219, end: 20161224
  7. IBRANCE [Suspect]
     Active Substance: PALBOCICLIB
     Indication: BREAST CANCER METASTATIC
     Dosage: CYCLIC (21 DAYS AND THEN IS OFF FOR 7 DAYS)
  8. IBRANCE [Suspect]
     Active Substance: PALBOCICLIB
     Dosage: 100 MG, CYCLIC [FOR 21 DAY^S, 7 DAY^S OFF]
     Dates: start: 201509
  9. LETROZOLE. [Suspect]
     Active Substance: LETROZOLE
     Dosage: UNK
     Dates: end: 201607
  10. HYDROCODONE 10-325 [Suspect]
     Active Substance: ACETAMINOPHEN\HYDROCODONE BITARTRATE
     Indication: BURNING SENSATION
     Dosage: UNK UNK, DAILY [HYDROCODONE BITARTRATE 10 MG], [PARACETAMOL 325 MG] [3 TO 4 TABLETS PER DAY]
     Dates: start: 201509
  11. FASLODEX [Concomitant]
     Active Substance: FULVESTRANT
     Dosage: UNK UNK, MONTHLY[ONE PUNCTURE ON EACH SIDE OF BUTTOX ONCE MONTHLY]
     Dates: start: 201607
  12. LETROZOLE. [Suspect]
     Active Substance: LETROZOLE
     Indication: BURNING SENSATION
     Dosage: UNK
     Dates: end: 201509
  13. HYDROCODONE 10-325 [Suspect]
     Active Substance: ACETAMINOPHEN\HYDROCODONE BITARTRATE
     Indication: PAIN
     Dosage: [HYDROCODONE BITARTRATE 10 MG], [PARACETAMOL 325 MG] (3-4 TABLETS PER DAY)
  14. IBRANCE [Suspect]
     Active Substance: PALBOCICLIB
     Indication: BONE CANCER
     Dosage: 100 MG, CYCLIC (21 DAYS ON, 7 DAYS OFF)

REACTIONS (3)
  - Pain [Not Recovered/Not Resolved]
  - Back pain [Unknown]
  - Burning sensation [Not Recovered/Not Resolved]

NARRATIVE: CASE EVENT DATE: 20161209
